FAERS Safety Report 17748717 (Version 1)
Quarter: 2020Q2

REPORT INFORMATION
  Report Type: Spontaneous
  Country: US (occurrence: US)
  Receive Date: 20200505
  Receipt Date: 20200505
  Transmission Date: 20200714
  Serious: No
  Sender: FDA-Public Use
  Company Number: US-ROCHE-2480022

PATIENT
  Sex: Male

DRUGS (1)
  1. ESBRIET [Suspect]
     Active Substance: PIRFENIDONE
     Indication: IDIOPATHIC PULMONARY FIBROSIS
     Dosage: ONGOING; YES (PRESENT), WITH FOOD
     Route: 065
     Dates: start: 20191010

REACTIONS (3)
  - Nausea [Unknown]
  - Headache [Unknown]
  - Pruritus [Unknown]
